FAERS Safety Report 5846872-5 (Version None)
Quarter: 2008Q3

REPORT INFORMATION
  Report Type: 
  Country: None (occurrence: None)
  Receive Date: 20080815
  Receipt Date: 20080811
  Transmission Date: 20090109
  Serious: Yes (Hospitalization)
  Sender: FDA-Public Use
  Company Number: SE-WYE-G01998008

PATIENT
  Age: 37 Year
  Sex: Female

DRUGS (2)
  1. TORISEL [Suspect]
     Indication: RENAL CELL CARCINOMA
     Route: 042
     Dates: start: 20080811
  2. INSULIN [Concomitant]
     Indication: DIABETES MELLITUS

REACTIONS (3)
  - DISCOMFORT [None]
  - DYSPNOEA [None]
  - LOSS OF CONSCIOUSNESS [None]
